FAERS Safety Report 10768907 (Version 3)
Quarter: 2015Q3

REPORT INFORMATION
  Report Type: Spontaneous
  Country: US (occurrence: US)
  Receive Date: 20150206
  Receipt Date: 20150827
  Transmission Date: 20151125
  Serious: No
  Sender: FDA-Public Use
  Company Number: US-AMGEN-USASP2015009578

PATIENT
  Age: 37 Year
  Sex: Female
  Weight: 64.85 kg

DRUGS (5)
  1. ENBREL [Suspect]
     Active Substance: ETANERCEPT
     Indication: ANKYLOSING SPONDYLITIS
     Dosage: 50 MG, 1 X WK
     Route: 065
     Dates: start: 201403
  2. VITAMIN D                          /00107901/ [Concomitant]
     Active Substance: ERGOCALCIFEROL
     Dosage: 250 MG, QD
     Route: 048
     Dates: start: 2013
  3. OMEGA 3                            /01333901/ [Concomitant]
     Active Substance: FISH OIL\TOCOPHEROL
     Dosage: 1000 MG, QD
     Route: 048
     Dates: start: 2013
  4. CALCIUM [Concomitant]
     Active Substance: CALCIUM
     Dosage: DAILY
     Route: 048
     Dates: start: 2013
  5. FIORICET [Concomitant]
     Active Substance: ACETAMINOPHEN\BUTALBITAL\CAFFEINE
     Indication: HEADACHE
     Dosage: PRN
     Route: 048
     Dates: start: 201412, end: 201412

REACTIONS (4)
  - Therapeutic response unexpected [Unknown]
  - Umbilical cord abnormality [Unknown]
  - Pregnancy [Recovered/Resolved]
  - Transverse presentation [Unknown]
